FAERS Safety Report 25354576 (Version 3)
Quarter: 2025Q2

REPORT INFORMATION
  Report Type: Spontaneous
  Country: CO (occurrence: CO)
  Receive Date: 20250524
  Receipt Date: 20250627
  Transmission Date: 20250716
  Serious: No
  Sender: AMGEN
  Company Number: CO-AMGEN-COLSP2025099531

PATIENT

DRUGS (2)
  1. PEGFILGRASTIM [Suspect]
     Active Substance: PEGFILGRASTIM
     Indication: Product used for unknown indication
     Route: 065
  2. PEGFILGRASTIM [Suspect]
     Active Substance: PEGFILGRASTIM
     Route: 065

REACTIONS (4)
  - Device adhesion issue [Unknown]
  - Device delivery system issue [Unknown]
  - Incorrect dose administered by device [Unknown]
  - Wrong technique in product usage process [Unknown]

NARRATIVE: CASE EVENT DATE: 20250515
